FAERS Safety Report 25863438 (Version 1)
Quarter: 2025Q3

REPORT INFORMATION
  Report Type: Spontaneous
  Country: GB (occurrence: GB)
  Receive Date: 20250930
  Receipt Date: 20250930
  Transmission Date: 20251021
  Serious: Yes (Hospitalization, Disabling, Other)
  Sender: RANBAXY
  Company Number: GB-MHRA-MED-202509141351289610-TZMYC

PATIENT
  Age: 56 Year
  Sex: Female
  Weight: 65 kg

DRUGS (1)
  1. SERTRALINE [Suspect]
     Active Substance: SERTRALINE HYDROCHLORIDE
     Indication: Adverse drug reaction
     Route: 065
     Dates: start: 20250309

REACTIONS (1)
  - Angle closure glaucoma [Not Recovered/Not Resolved]

NARRATIVE: CASE EVENT DATE: 20250501
